FAERS Safety Report 9027315 (Version 2)
Quarter: 2013Q1

REPORT INFORMATION
  Report Type: Spontaneous
  Country: US (occurrence: US)
  Receive Date: 20130123
  Receipt Date: 20130312
  Transmission Date: 20140127
  Serious: No
  Sender: FDA-Public Use
  Company Number: US-009507513-1301USA010910

PATIENT
  Sex: Female
  Weight: 58.96 kg

DRUGS (2)
  1. CLARITIN-D 12 HOUR [Suspect]
     Indication: RESPIRATORY TRACT CONGESTION
     Dosage: 5 MG, ONCE
     Route: 048
     Dates: start: 201205, end: 2012
  2. CLARITIN-D 12 HOUR [Suspect]
     Indication: HYPERSENSITIVITY

REACTIONS (5)
  - Respiration abnormal [Recovered/Resolved]
  - Heart rate increased [Recovered/Resolved]
  - Tremor [Unknown]
  - Nervousness [Unknown]
  - Nonspecific reaction [Unknown]
